FAERS Safety Report 22068610 (Version 1)
Quarter: 2023Q1

REPORT INFORMATION
  Report Type: Other
  Country: RO (occurrence: RO)
  Receive Date: 20230307
  Receipt Date: 20230307
  Transmission Date: 20230418
  Serious: Yes (Other)
  Sender: FDA-Public Use
  Company Number: RO-002147023-NVSC2021RO217751

PATIENT
  Age: 32 Year
  Sex: Female

DRUGS (3)
  1. XOLAIR [Suspect]
     Active Substance: OMALIZUMAB
     Indication: Asthma
     Dosage: UNK
     Route: 065
     Dates: start: 202106
  2. XOLAIR [Suspect]
     Active Substance: OMALIZUMAB
     Dosage: UNK, (4 DOSES)
     Route: 065
     Dates: start: 2021
  3. XOLAIR [Suspect]
     Active Substance: OMALIZUMAB
     Dosage: UNK
     Route: 058

REACTIONS (2)
  - Cough [Recovered/Resolved]
  - COVID-19 [Recovered/Resolved]

NARRATIVE: CASE EVENT DATE: 20210101
